FAERS Safety Report 4489044-1 (Version None)
Quarter: 2004Q4

REPORT INFORMATION
  Report Type: 
  Country: None (occurrence: None)
  Receive Date: 20041029
  Receipt Date: 20010625
  Transmission Date: 20050328
  Serious: Yes (Hospitalization)
  Sender: FDA-Public Use
  Company Number: US-MERCK-01062240

PATIENT
  Age: 79 Year
  Sex: Male

DRUGS (9)
  1. VIOXX [Suspect]
     Indication: SPONDYLOSIS
     Route: 048
     Dates: start: 20010601, end: 20030101
  2. VIOXX [Suspect]
     Route: 048
     Dates: start: 20030101, end: 20040926
  3. VIOXX [Suspect]
     Indication: ARTHRITIS
     Route: 048
     Dates: start: 20010601, end: 20030101
  4. VIOXX [Suspect]
     Route: 048
     Dates: start: 20030101, end: 20040926
  5. OXYCODONE [Concomitant]
     Route: 065
  6. LANSOPRAZOLE [Concomitant]
     Route: 065
  7. PROZAC [Concomitant]
     Route: 065
  8. FEXOFENADINE HYDROCHLORIDE [Concomitant]
     Route: 065
  9. FLUOXETINE [Concomitant]
     Route: 065

REACTIONS (11)
  - ASTHENIA [None]
  - CARDIAC FAILURE CONGESTIVE [None]
  - CHEST PAIN [None]
  - DRUG INEFFECTIVE [None]
  - HYPOTENSION [None]
  - MEDICATION ERROR [None]
  - PAIN [None]
  - PAIN IN JAW [None]
  - RENAL DISORDER [None]
  - SYNCOPE [None]
  - TACHYCARDIA [None]
